FAERS Safety Report 5997356-5 (Version None)
Quarter: 2008Q4

REPORT INFORMATION
  Report Type: 
  Country: None (occurrence: None)
  Receive Date: 20081211
  Receipt Date: 20081120
  Transmission Date: 20090506
  Serious: Yes (Other)
  Sender: FDA-Public Use
  Company Number: DAB-2008-00068

PATIENT
  Age: 56 Year
  Sex: Male
  Weight: 87.7 kg

DRUGS (5)
  1. PACLITAXEL [Suspect]
     Indication: LUNG NEOPLASM MALIGNANT
     Dosage: INTRAVENOUS
     Route: 042
     Dates: start: 20081110, end: 20081110
  2. PALONOSETRON (PALONOSETRON) [Concomitant]
  3. DIPHENHYDRAMINE HCL [Concomitant]
  4. CIMETIDINE [Concomitant]
  5. DEXAMETHASONE [Concomitant]

REACTIONS (4)
  - BACK PAIN [None]
  - BLOOD PRESSURE DECREASED [None]
  - CHEST PAIN [None]
  - OXYGEN SATURATION DECREASED [None]
